FAERS Safety Report 12057795 (Version 1)
Quarter: 2016Q1

REPORT INFORMATION
  Report Type: Spontaneous
  Country: US (occurrence: US)
  Receive Date: 20160210
  Receipt Date: 20160210
  Transmission Date: 20160526
  Serious: Yes (Hospitalization)
  Sender: FDA-Public Use
  Company Number: US-BEH-2016058454

PATIENT
  Age: 40 Year
  Sex: Female
  Weight: 65 kg

DRUGS (22)
  1. TOPAMAX [Concomitant]
     Active Substance: TOPIRAMATE
  2. SEREVENT DISKUS [Concomitant]
     Active Substance: SALMETEROL XINAFOATE
  3. FLOVENT [Concomitant]
     Active Substance: FLUTICASONE PROPIONATE
  4. SYNTHROID [Concomitant]
     Active Substance: LEVOTHYROXINE SODIUM
  5. FENTANYL. [Concomitant]
     Active Substance: FENTANYL
  6. PRILOSEC [Concomitant]
     Active Substance: OMEPRAZOLE MAGNESIUM
  7. ZYRTEC [Concomitant]
     Active Substance: CETIRIZINE HYDROCHLORIDE
  8. SINGULAIR [Concomitant]
     Active Substance: MONTELUKAST SODIUM
  9. SPIRIVA [Concomitant]
     Active Substance: TIOTROPIUM BROMIDE MONOHYDRATE
  10. HYDROMORPHONE [Concomitant]
     Active Substance: HYDROMORPHONE
  11. BACTRIM [Concomitant]
     Active Substance: SULFAMETHOXAZOLE\TRIMETHOPRIM
  12. ZANAFLEX [Concomitant]
     Active Substance: TIZANIDINE HYDROCHLORIDE
  13. ACETAMINOPHEN. [Concomitant]
     Active Substance: ACETAMINOPHEN
  14. EPIPEN [Concomitant]
     Active Substance: EPINEPHRINE
  15. PROVENTIL [Concomitant]
     Active Substance: ALBUTEROL
  16. LIDOCAINE. [Concomitant]
     Active Substance: LIDOCAINE
  17. HIZENTRA [Suspect]
     Active Substance: HUMAN IMMUNOGLOBULIN G
     Indication: IMMUNODEFICIENCY COMMON VARIABLE
     Route: 058
  18. DIPHENHYDRAMINE. [Concomitant]
     Active Substance: DIPHENHYDRAMINE
  19. PROZAC [Concomitant]
     Active Substance: FLUOXETINE HYDROCHLORIDE
  20. CARAFATE [Concomitant]
     Active Substance: SUCRALFATE
  21. XANAX [Concomitant]
     Active Substance: ALPRAZOLAM
  22. ZOLPIDEM [Concomitant]
     Active Substance: ZOLPIDEM\ZOLPIDEM TARTRATE

REACTIONS (3)
  - Cystitis [Unknown]
  - Road traffic accident [Unknown]
  - Injury [Unknown]

NARRATIVE: CASE EVENT DATE: 20160112
